FAERS Safety Report 25008751 (Version 1)
Quarter: 2025Q1

REPORT INFORMATION
  Report Type: Spontaneous
  Country: US (occurrence: None)
  Receive Date: 20250224
  Receipt Date: 20250224
  Transmission Date: 20250409
  Serious: Yes (Life-Threatening, Disabling)
  Sender: FDA-CTU
  Company Number: None

PATIENT
  Age: 35 Year
  Sex: Male
  Weight: 78.75 kg

DRUGS (1)
  1. PAXIL [Suspect]
     Active Substance: PAROXETINE HYDROCHLORIDE
     Indication: Major depression
     Dates: start: 20170910, end: 20221023

REACTIONS (4)
  - Intentional product use issue [None]
  - Electric shock sensation [None]
  - Anger [None]
  - Agitation [None]

NARRATIVE: CASE EVENT DATE: 20190405
